FAERS Safety Report 5184624-2 (Version None)
Quarter: 2006Q4

REPORT INFORMATION
  Report Type: 
  Country: None (occurrence: None)
  Receive Date: 20061220
  Receipt Date: 20060320
  Transmission Date: 20070319
  Serious: No
  Sender: FDA-Public Use
  Company Number: US-GLAXOSMITHKLINE-A0598363A

PATIENT
  Age: 55 Year
  Sex: Male

DRUGS (2)
  1. NICODERM CQ [Suspect]
     Dates: end: 20060316
  2. NICODERM CQ [Suspect]
     Dates: end: 20060316

REACTIONS (6)
  - APPLICATION SITE EXCORIATION [None]
  - APPLICATION SITE IRRITATION [None]
  - APPLICATION SITE PRURITUS [None]
  - APPLICATION SITE SCAB [None]
  - APPLICATION SITE SCAR [None]
  - APPLICATION SITE VESICLES [None]
